FAERS Safety Report 14350985 (Version 1)
Quarter: 2018Q1

REPORT INFORMATION
  Report Type: Spontaneous
  Country: FR (occurrence: FR)
  Receive Date: 20180104
  Receipt Date: 20180104
  Transmission Date: 20180509
  Serious: Yes (Hospitalization, Other)
  Sender: FDA-Public Use
  Company Number: FR-PFIZER INC-2017552812

PATIENT
  Age: 80 Year
  Sex: Male
  Weight: 69 kg

DRUGS (17)
  1. EYLEA [Concomitant]
     Active Substance: AFLIBERCEPT
  2. ULTIBRO BREEZHALER [Concomitant]
     Active Substance: GLYCOPYRRONIUM\INDACATEROL
     Dosage: 1 DF, 1X/DAY
     Route: 055
  3. AUGMENTIN [Suspect]
     Active Substance: AMOXICILLIN\CLAVULANATE POTASSIUM
     Indication: INFECTION
     Dosage: UNK
     Route: 048
     Dates: start: 201709
  4. KESTINLYO [Suspect]
     Active Substance: EBASTINE
     Dosage: 2 DF, AS NEEDED
     Route: 048
     Dates: start: 20171013
  5. SIMVASTATIN. [Concomitant]
     Active Substance: SIMVASTATIN
     Dosage: 40 MG, 1X/DAY
     Route: 048
  6. RACECADOTRIL [Suspect]
     Active Substance: RACECADOTRIL
     Indication: DIARRHOEA
     Dosage: 3 DF, AS NEEDED
     Route: 048
     Dates: start: 20170808
  7. NAFTIDROFURYL [Concomitant]
     Active Substance: NAFRONYL
     Dosage: 2 DF, 1X/DAY
     Route: 048
  8. PNEUMOREL [Suspect]
     Active Substance: FENSPIRIDE HYDROCHLORIDE
     Dosage: UNK
     Route: 048
     Dates: start: 201709
  9. OMEXEL [Concomitant]
     Active Substance: TAMSULOSIN HYDROCHLORIDE
     Dosage: 1 DF, 1X/DAY
     Route: 048
  10. OGASTORO [Concomitant]
     Active Substance: LANSOPRAZOLE
     Dosage: 1 DF, 1X/DAY
     Route: 048
  11. PLAVIX [Concomitant]
     Active Substance: CLOPIDOGREL BISULFATE
     Dosage: 1 DF, 1X/DAY
     Route: 048
  12. TRIMEBUTINE [Concomitant]
     Active Substance: TRIMEBUTINE
     Dosage: 3 DF, 1X/DAY
     Route: 048
  13. FOLIC ACID. [Concomitant]
     Active Substance: FOLIC ACID
     Dosage: 2 DF, 1X/DAY
     Route: 048
     Dates: start: 20171002, end: 20171027
  14. GABAPENTINE [Concomitant]
     Active Substance: GABAPENTIN
     Dosage: 600 MG, 1X/DAY
     Route: 048
  15. CEFTRIAXONE SODIUM. [Suspect]
     Active Substance: CEFTRIAXONE SODIUM
     Indication: INFECTION
     Dosage: UNK
     Route: 030
     Dates: start: 201709
  16. AVODART [Concomitant]
     Active Substance: DUTASTERIDE
     Dosage: 1 DF, 1X/DAY
     Route: 048
  17. HOMEOPATHICS NOS [Concomitant]

REACTIONS (1)
  - Pancytopenia [Not Recovered/Not Resolved]

NARRATIVE: CASE EVENT DATE: 20171031
